FAERS Safety Report 6228849-3 (Version None)
Quarter: 2009Q2

REPORT INFORMATION
  Report Type: 
  Country: None (occurrence: None)
  Receive Date: 20090615
  Receipt Date: 20080116
  Transmission Date: 20091009
  Serious: Yes (Other)
  Sender: FDA-Public Use
  Company Number: US-ASTRAZENECA-2007UW16990

PATIENT
  Age: 55 Year
  Sex: Female
  Weight: 55.3 kg

DRUGS (27)
  1. SEROQUEL [Suspect]
     Indication: SLEEP DISORDER
     Route: 048
     Dates: start: 20020101, end: 20060101
  2. SEROQUEL [Suspect]
     Route: 048
     Dates: start: 20020830
  3. CLOZARIL [Concomitant]
     Route: 048
  4. CYMBALTA [Concomitant]
     Route: 065
     Dates: start: 20060913
  5. AMBIEN [Concomitant]
     Route: 065
     Dates: start: 20020830
  6. REMERON [Concomitant]
     Route: 065
     Dates: start: 20020830
  7. CELEXA [Concomitant]
     Route: 065
     Dates: start: 20020830
  8. TRIAMTERENE AND HYDROCHLOROTHIAZIDE [Concomitant]
     Route: 065
     Dates: start: 20020830
  9. THYROLAR [Concomitant]
     Route: 065
     Dates: start: 20020910
  10. PREVACID [Concomitant]
     Route: 065
     Dates: start: 20020910
  11. CELEBREX [Concomitant]
     Route: 065
     Dates: start: 20020722
  12. CARISOPRODOL [Concomitant]
     Route: 065
     Dates: start: 20020705
  13. LIPITOR [Concomitant]
     Route: 065
     Dates: start: 20020705
  14. ENDOCET [Concomitant]
     Dosage: 10/650 MG
     Route: 065
     Dates: start: 20020705
  15. LORAZEPAM [Concomitant]
     Route: 065
     Dates: start: 20020815
  16. NEURONTIN [Concomitant]
     Dosage: 300 TO 1200 MG AT NIGHT
     Route: 048
     Dates: start: 20060719
  17. ATARAX [Concomitant]
     Route: 065
     Dates: start: 20070920
  18. ZOCOR [Concomitant]
     Route: 065
     Dates: start: 20070920
  19. SYNTHROID [Concomitant]
     Route: 065
     Dates: start: 20070920
  20. ADVAIR HFA [Concomitant]
     Route: 065
     Dates: start: 20070920
  21. FOSAMAX [Concomitant]
     Route: 065
     Dates: start: 20070920
  22. ASPIRIN [Concomitant]
     Route: 065
     Dates: start: 20070920
  23. GLUCOPHAGE [Concomitant]
     Route: 065
     Dates: start: 20070920
  24. TRILEPTAL [Concomitant]
     Route: 065
     Dates: start: 20070920
  25. DIOVAN [Concomitant]
     Route: 065
     Dates: start: 20070920
  26. NEXIUM [Concomitant]
     Route: 065
     Dates: start: 20070920
  27. LYRICA [Concomitant]
     Route: 048

REACTIONS (6)
  - BRADYPNOEA [None]
  - DIABETES MELLITUS [None]
  - DIABETIC NEUROPATHY [None]
  - LOSS OF CONSCIOUSNESS [None]
  - TRIGEMINAL NEURALGIA [None]
  - TYPE 2 DIABETES MELLITUS [None]
